FAERS Safety Report 5419147-6 (Version None)
Quarter: 2007Q3

REPORT INFORMATION
  Report Type: 
  Country: None (occurrence: None)
  Receive Date: 20070820
  Receipt Date: 20070418
  Transmission Date: 20080115
  Serious: Yes (Other)
  Sender: FDA-Public Use
  Company Number: CA-BAYER-200711336GDS

PATIENT
  Age: 39 Year
  Sex: Female
  Weight: 95 kg

DRUGS (3)
  1. AVELOX [Suspect]
     Indication: PNEUMONIA
     Route: 048
     Dates: start: 20061015, end: 20061017
  2. APO-PREDNISONE [Suspect]
     Indication: INFLAMMATION
     Route: 048
  3. BIAXIN XL [Concomitant]
     Indication: DRUG USE FOR UNKNOWN INDICATION
     Route: 065
     Dates: start: 20061008, end: 20061014

REACTIONS (2)
  - BURNING SENSATION [None]
  - PYREXIA [None]
